FAERS Safety Report 16425432 (Version 1)
Quarter: 2019Q2

REPORT INFORMATION
  Report Type: Report from Study
  Country: DE (occurrence: DE)
  Receive Date: 20190613
  Receipt Date: 20190613
  Transmission Date: 20190711
  Serious: Yes (Death, Other)
  Sender: FDA-Public Use
  Company Number: DE-TEVA-2019-DE-1061968

PATIENT
  Age: 49 Year
  Sex: Male

DRUGS (3)
  1. PIPAMPERONE [Suspect]
     Active Substance: PIPAMPERONE
     Indication: SCHIZOPHRENIA
     Dosage: TOOK MORE THAN 2000MG OF PIPAMPERONE
     Route: 065
  2. LORAZEPAM. [Concomitant]
     Active Substance: LORAZEPAM
     Indication: SCHIZOPHRENIA
     Route: 065
  3. CLOZAPINE. [Suspect]
     Active Substance: CLOZAPINE
     Indication: SCHIZOPHRENIA
     Route: 065

REACTIONS (9)
  - Brain oedema [Unknown]
  - Increased bronchial secretion [Unknown]
  - Intentional overdose [Fatal]
  - Conjunctival haemorrhage [Unknown]
  - Pulmonary congestion [Unknown]
  - Eyelid bleeding [Unknown]
  - Toxicity to various agents [Fatal]
  - Pulmonary oedema [Unknown]
  - Paralysis [Unknown]
